FAERS Safety Report 15512858 (Version 1)
Quarter: 2018Q4

REPORT INFORMATION
  Report Type: Spontaneous
  Country: US (occurrence: US)
  Receive Date: 20181016
  Receipt Date: 20181016
  Transmission Date: 20190205
  Serious: No
  Sender: FDA-Public Use
  Company Number: US-AMGEN-USASP2018058799

PATIENT
  Age: 62 Year
  Sex: Female

DRUGS (1)
  1. NEULASTA [Suspect]
     Active Substance: PEGFILGRASTIM
     Indication: NEUTROPENIA
     Dosage: 6 MG, Q3WK
     Route: 065
     Dates: start: 20180420

REACTIONS (4)
  - Pyrexia [Recovering/Resolving]
  - Dyspnoea exertional [Unknown]
  - Bone pain [Recovering/Resolving]
  - White blood cell count increased [Unknown]

NARRATIVE: CASE EVENT DATE: 201804
